FAERS Safety Report 8618398-7 (Version None)
Quarter: 2012Q3

REPORT INFORMATION
  Report Type: 
  Country: None (occurrence: None)
  Receive Date: 20120824
  Receipt Date: 20120821
  Transmission Date: 20120928
  Serious: No
  Sender: FDA-Public Use
  Company Number: US-BIOGENIDEC-2012BI032740

PATIENT
  Age: 63 Year
  Sex: Female

DRUGS (5)
  1. TYSABRI [Suspect]
     Route: 042
     Dates: start: 20120411
  2. TIZANIDINE HYDROCHLORIDE [Concomitant]
     Indication: VERTIGO
     Route: 048
     Dates: start: 20110101
  3. TYSABRI [Suspect]
     Indication: MULTIPLE SCLEROSIS
     Route: 042
     Dates: start: 20070911, end: 20080115
  4. PROVIGIL [Concomitant]
     Indication: FATIGUE
  5. TIZANIDINE HYDROCHLORIDE [Concomitant]
     Indication: BALANCE DISORDER
     Route: 048
     Dates: start: 20110101

REACTIONS (7)
  - FALL [None]
  - HEMIPARESIS [None]
  - SOMNOLENCE [None]
  - MULTIPLE SCLEROSIS RELAPSE [None]
  - BALANCE DISORDER [None]
  - VERTIGO [None]
  - CONTUSION [None]
